FAERS Safety Report 9699853 (Version 1)
Quarter: 2013Q4

REPORT INFORMATION
  Report Type: Spontaneous
  Country: US (occurrence: US)
  Receive Date: 20131121
  Receipt Date: 20131121
  Transmission Date: 20140711
  Serious: Yes (Hospitalization, Other)
  Sender: FDA-Public Use
  Company Number: US-BAXTER-2013BAX045123

PATIENT
  Sex: Male

DRUGS (6)
  1. DIANEAL LOW CALCIUM [Suspect]
     Indication: PERITONEAL DIALYSIS
     Route: 033
     Dates: start: 20101112
  2. DIANEAL LOW CALCIUM [Suspect]
     Route: 033
     Dates: start: 20101112
  3. DIANEAL LOW CALCIUM [Suspect]
     Indication: PERITONEAL DIALYSIS
     Route: 033
     Dates: start: 20101112
  4. DIANEAL LOW CALCIUM [Suspect]
     Route: 033
     Dates: start: 20101112
  5. DIANEAL LOW CALCIUM (ULTRABAG) [Suspect]
     Indication: PERITONEAL DIALYSIS
     Route: 033
     Dates: start: 20101112
  6. DIANEAL LOW CALCIUM (ULTRABAG) [Suspect]
     Indication: PERITONEAL DIALYSIS
     Route: 033
     Dates: start: 20101112

REACTIONS (6)
  - Lipids decreased [Recovering/Resolving]
  - Blood count abnormal [Recovering/Resolving]
  - Blood electrolytes decreased [Recovering/Resolving]
  - Cardiac disorder [Recovering/Resolving]
  - Tachycardia [Recovering/Resolving]
  - Asthenia [Recovering/Resolving]
